FAERS Safety Report 15149622 (Version 1)
Quarter: 2018Q3

REPORT INFORMATION
  Report Type: Spontaneous
  Country: KG (occurrence: KG)
  Receive Date: 20180716
  Receipt Date: 20180716
  Transmission Date: 20181010
  Serious: Yes (Other)
  Sender: FDA-Public Use
  Company Number: PHHY2018KG039325

PATIENT
  Age: 31 Year
  Sex: Female
  Weight: 34 kg

DRUGS (9)
  1. CAPREOMYCIN [Suspect]
     Active Substance: CAPREOMYCIN
     Dosage: 600 OT, QD
     Route: 030
     Dates: start: 20180111, end: 20180613
  2. CILASTATIN/IMIPEN [Concomitant]
     Active Substance: CILASTATIN SODIUM\IMIPENEM
     Indication: PRODUCT USED FOR UNKNOWN INDICATION
     Dosage: UNK
     Route: 065
     Dates: start: 20180111, end: 20180323
  3. VITAMIN B6 [Concomitant]
     Active Substance: PYRIDOXINE HYDROCHLORIDE
     Indication: NEUROPATHY PERIPHERAL
  4. AMOXICILLIN AND CLAVULANATE POTASSIUM [Concomitant]
     Active Substance: AMOXICILLIN\CLAVULANATE POTASSIUM
     Indication: PRODUCT USED FOR UNKNOWN INDICATION
     Dosage: UNK
     Route: 065
     Dates: start: 20180111, end: 20180323
  5. CLOFAZIMINE [Suspect]
     Active Substance: CLOFAZIMINE
     Indication: PULMONARY TUBERCULOSIS
     Dosage: 200 OT, QD
     Route: 048
     Dates: start: 20180111, end: 2018
  6. MOXIFLOXACIN. [Suspect]
     Active Substance: MOXIFLOXACIN
     Indication: PULMONARY TUBERCULOSIS
     Dosage: 400 OT, QD
     Route: 048
     Dates: start: 20180111, end: 20180613
  7. CLOFAZIMINE [Suspect]
     Active Substance: CLOFAZIMINE
     Dosage: 100 OT, UNK
     Route: 048
     Dates: start: 20180312, end: 20180613
  8. CAPREOMYCIN [Suspect]
     Active Substance: CAPREOMYCIN
     Indication: PULMONARY TUBERCULOSIS
     Dosage: 600 OT, QD
     Route: 065
     Dates: start: 20170217, end: 20171228
  9. DELAMANID [Suspect]
     Active Substance: DELAMANID
     Indication: PULMONARY TUBERCULOSIS
     Dosage: 200 OT, QD
     Route: 048
     Dates: start: 20180111, end: 20180613

REACTIONS (6)
  - Chest pain [Unknown]
  - Vomiting [Recovered/Resolved]
  - Influenza like illness [Unknown]
  - Cough [Unknown]
  - Hypotension [Recovered/Resolved]
  - Dyspnoea [Unknown]

NARRATIVE: CASE EVENT DATE: 20180213
